FAERS Safety Report 8588196-1 (Version None)
Quarter: 2012Q3

REPORT INFORMATION
  Report Type: 
  Country: None (occurrence: None)
  Receive Date: 20120803
  Receipt Date: 20120803
  Transmission Date: 20120928
  Serious: Yes (Hospitalization)
  Sender: FDA-Public Use
  Company Number: None

PATIENT
  Sex: Male
  Weight: 88.6 kg

DRUGS (11)
  1. RED RICE YEAST [Concomitant]
  2. FISH OIL [Concomitant]
  3. ASPIRIN [Concomitant]
  4. HYTRIN [Concomitant]
  5. NITROGLYCERIN [Concomitant]
  6. XARELTO [Suspect]
     Indication: ATRIAL FIBRILLATION
     Dosage: 20 MG DAILY PO
     Route: 048
     Dates: start: 20120622, end: 20120731
  7. ATROVENT [Concomitant]
  8. POTASSIUM CHLORIDE [Concomitant]
  9. ENALAPRIL MALEATE [Concomitant]
  10. FLUTICASONE PROPIONATE [Concomitant]
  11. HYDROCHLOROTHIAZIDE [Concomitant]

REACTIONS (1)
  - GASTROINTESTINAL HAEMORRHAGE [None]
